FAERS Safety Report 7598244-3 (Version None)
Quarter: 2011Q3

REPORT INFORMATION
  Report Type: 
  Country: None (occurrence: None)
  Receive Date: 20110708
  Receipt Date: 20110707
  Transmission Date: 20111222
  Serious: Yes (Death, Hospitalization)
  Sender: FDA-Public Use
  Company Number: NL-ROCHE-781604

PATIENT
  Sex: Male
  Weight: 66 kg

DRUGS (16)
  1. MINOXIDIL [Concomitant]
     Dates: start: 20091229
  2. ASPIRIN [Concomitant]
     Dates: start: 20090515
  3. RITUXIMAB [Suspect]
     Dosage: TWICE
     Route: 065
     Dates: start: 20090402, end: 20090416
  4. TACROLIMUS [Suspect]
     Route: 065
     Dates: start: 20090311
  5. BISOPROLOL FUMARATE [Concomitant]
     Dates: start: 20091229
  6. POLYSTYRENE SULFONATE [Concomitant]
     Dates: start: 20091013
  7. PANTOPRAZOLE [Concomitant]
     Dates: start: 20090310
  8. PERINDOPRIL [Concomitant]
     Dates: start: 20090323
  9. AMLODIPINE [Concomitant]
     Dates: start: 20100615
  10. EPOGEN [Concomitant]
     Dosage: DOSE: 4000/PER WEEK
     Dates: start: 20100615
  11. BLINDED RITUXIMAB [Suspect]
     Dosage: DOSE FREQUENCY: ONCE DOSAGE FORM: INFUSION
     Route: 042
     Dates: start: 20090310, end: 20090310
  12. PREDNISOLONE [Suspect]
     Route: 065
     Dates: start: 20090310
  13. FRUSEMID [Concomitant]
     Dates: start: 20091103
  14. CINACALCET [Concomitant]
     Dates: start: 20091009
  15. MYCOPHENOLATE MEFETIL [Suspect]
     Route: 065
     Dates: start: 20090311
  16. PRAVASTATIN [Concomitant]
     Dates: start: 20090722

REACTIONS (2)
  - TUMOUR PAIN [None]
  - LUNG CANCER METASTATIC [None]
